FAERS Safety Report 8265655-2 (Version None)
Quarter: 2012Q2

REPORT INFORMATION
  Report Type: 
  Country: None (occurrence: None)
  Receive Date: 20120406
  Receipt Date: 20120402
  Transmission Date: 20120825
  Serious: Yes (Hospitalization)
  Sender: FDA-Public Use
  Company Number: FR-ABBOTT-12P-056-0919687-00

PATIENT
  Sex: Female

DRUGS (5)
  1. ABACAVIR SULFATE/LAMIVUDINE [Concomitant]
     Indication: PRODUCT USED FOR UNKNOWN INDICATION
  2. DARUNAVIR HYDRATE [Concomitant]
     Indication: PRODUCT USED FOR UNKNOWN INDICATION
  3. NORVIR [Suspect]
     Indication: HIV INFECTION
     Dates: start: 20051122
  4. TRUVADA [Suspect]
     Indication: HIV INFECTION
     Dates: start: 20051122, end: 20120125
  5. REYATAZ [Suspect]
     Indication: HIV INFECTION
     Dates: start: 20051122, end: 20120125

REACTIONS (1)
  - RENAL FAILURE ACUTE [None]
